FAERS Safety Report 20310059 (Version 3)
Quarter: 2022Q1

REPORT INFORMATION
  Report Type: Spontaneous
  Country: FR (occurrence: FR)
  Receive Date: 20220107
  Receipt Date: 20220315
  Transmission Date: 20220423
  Serious: Yes (Hospitalization, Other)
  Sender: FDA-Public Use
  Company Number: FR-ABBVIE-21K-056-4215539-00

PATIENT
  Age: 82 Year
  Sex: Male
  Weight: 85 kg

DRUGS (4)
  1. LOPINAVIR\RITONAVIR [Interacting]
     Active Substance: LOPINAVIR\RITONAVIR
     Indication: COVID-19
     Route: 048
     Dates: start: 20200314, end: 20200316
  2. LOPINAVIR\RITONAVIR [Interacting]
     Active Substance: LOPINAVIR\RITONAVIR
     Dosage: DOSE REDUCED BY 50 PERCENT
     Route: 048
     Dates: start: 20200317, end: 20200318
  3. APIXABAN [Interacting]
     Active Substance: APIXABAN
     Indication: Atrial fibrillation
     Dosage: CUMULATIVE DOSE TO FIRST REACTION 60 MILLIGRAMS
     Route: 065
     Dates: start: 20200309, end: 20200314
  4. ENOXAPARIN [Concomitant]
     Active Substance: ENOXAPARIN
     Indication: Atrial fibrillation
     Dosage: 8000 UI/ML
     Dates: start: 20200315, end: 20200316

REACTIONS (3)
  - Acute kidney injury [Recovered/Resolved]
  - Off label use [Unknown]
  - Drug interaction [Recovered/Resolved]

NARRATIVE: CASE EVENT DATE: 20200301
